FAERS Safety Report 9890349 (Version 1)
Quarter: 2014Q1

REPORT INFORMATION
  Report Type: Report from Study
  Country: US (occurrence: US)
  Receive Date: 20140212
  Receipt Date: 20140212
  Transmission Date: 20141002
  Serious: Yes (Other)
  Sender: FDA-Public Use
  Company Number: US-ROCHE-1343039

PATIENT
  Sex: Male

DRUGS (19)
  1. AVASTIN [Suspect]
     Indication: RETINAL VEIN OCCLUSION
     Route: 050
     Dates: start: 20130225
  2. AVASTIN [Suspect]
     Route: 050
     Dates: start: 20130325
  3. AVASTIN [Suspect]
     Route: 050
     Dates: start: 20130422
  4. AVASTIN [Suspect]
     Route: 050
     Dates: start: 20130605
  5. AVASTIN [Suspect]
     Route: 050
     Dates: start: 20130715
  6. AVASTIN [Suspect]
     Route: 050
     Dates: start: 20130819
  7. AVASTIN [Suspect]
     Route: 050
     Dates: start: 20130923
  8. AVASTIN [Suspect]
     Route: 050
     Dates: start: 20131021
  9. AVASTIN [Suspect]
     Route: 050
     Dates: start: 20131118
  10. AMLODIPINE BESYLATE [Concomitant]
  11. NOVOLOG [Concomitant]
  12. FUROSEMIDE [Concomitant]
  13. LISINOPRIL [Concomitant]
  14. ALBUTEROL SULFATE [Concomitant]
  15. ALLOPURINOL [Concomitant]
     Route: 065
  16. METOPROLOL SUCCINATE [Concomitant]
  17. ADVAIR DISKUS [Concomitant]
  18. ASPIRIN [Concomitant]
  19. ATORVASTATIN CALCIUM [Concomitant]
     Route: 065

REACTIONS (3)
  - Ocular hyperaemia [Unknown]
  - Eye irritation [Unknown]
  - Lacrimation increased [Unknown]
